FAERS Safety Report 5905373-6 (Version None)
Quarter: 2008Q4

REPORT INFORMATION
  Report Type: 
  Country: None (occurrence: None)
  Receive Date: 20081001
  Receipt Date: 20080919
  Transmission Date: 20090506
  Serious: Yes (Hospitalization)
  Sender: FDA-Public Use
  Company Number: ES-PFIZER INC-2008079281

PATIENT
  Age: 63 Year
  Sex: Female

DRUGS (2)
  1. PREGABALIN [Suspect]
     Dates: start: 20080701, end: 20080917
  2. ACOVIL [Concomitant]

REACTIONS (1)
  - CARDIOMYOPATHY [None]
